FAERS Safety Report 15315433 (Version 1)
Quarter: 2018Q3

REPORT INFORMATION
  Report Type: Spontaneous
  Country: US (occurrence: US)
  Receive Date: 20180815
  Receipt Date: 20180815
  Transmission Date: 20181010
  Serious: No
  Sender: FDA-Public Use
  Company Number: None

PATIENT
  Age: 22 Year
  Sex: Female
  Weight: 78.75 kg

DRUGS (4)
  1. DOXETINE DELAYED RELEASE CAPSUL [Suspect]
     Active Substance: DULOXETINE HYDROCHLORIDE
     Indication: FIBROMYALGIA
     Dosage: ?          QUANTITY:1 DF DOSAGE FORM;?
     Route: 048
     Dates: start: 20180617, end: 20180815
  2. DOLOVENT [Concomitant]
  3. DOXETINE DELAYED RELEASE CAPSUL [Suspect]
     Active Substance: DULOXETINE HYDROCHLORIDE
     Indication: POST-TRAUMATIC STRESS DISORDER
     Dosage: ?          QUANTITY:1 DF DOSAGE FORM;?
     Route: 048
     Dates: start: 20180617, end: 20180815
  4. MULTIVITAMIN [Concomitant]
     Active Substance: VITAMINS

REACTIONS (4)
  - Menorrhagia [None]
  - Breast swelling [None]
  - Breast tenderness [None]
  - Polymenorrhoea [None]

NARRATIVE: CASE EVENT DATE: 20180813
